FAERS Safety Report 17650696 (Version 2)
Quarter: 2020Q2

REPORT INFORMATION
  Report Type: Spontaneous
  Country: US (occurrence: US)
  Receive Date: 20200409
  Receipt Date: 20200513
  Transmission Date: 20200713
  Serious: No
  Sender: FDA-Public Use
  Company Number: US-BAUSCH-BL-2020-008110

PATIENT
  Age: 55 Year
  Sex: Female

DRUGS (2)
  1. LACRISERT [Suspect]
     Active Substance: HYDROXYPROPYL CELLULOSE
     Indication: DRY EYE
     Route: 047
     Dates: start: 1998, end: 202002
  2. LACRISERT [Suspect]
     Active Substance: HYDROXYPROPYL CELLULOSE
     Dosage: TAKEN SAMPLE FROM DOCTOR
     Route: 047
     Dates: start: 2020, end: 2020

REACTIONS (13)
  - Impaired work ability [Unknown]
  - Ocular discomfort [Unknown]
  - Therapy interrupted [Unknown]
  - Eye pain [Unknown]
  - Dry eye [Not Recovered/Not Resolved]
  - Ocular hyperaemia [Not Recovered/Not Resolved]
  - Wrong technique in product usage process [Unknown]
  - Product availability issue [Unknown]
  - Intentional product use issue [Unknown]
  - Eyelid margin crusting [Not Recovered/Not Resolved]
  - Visual impairment [Unknown]
  - Eye inflammation [Not Recovered/Not Resolved]
  - Disease recurrence [Not Recovered/Not Resolved]

NARRATIVE: CASE EVENT DATE: 2020
